FAERS Safety Report 5064470-0 (Version None)
Quarter: 2006Q3

REPORT INFORMATION
  Report Type: 
  Country: None (occurrence: None)
  Receive Date: 20060725
  Receipt Date: 20060712
  Transmission Date: 20061208
  Serious: Yes (Hospitalization, Other)
  Sender: FDA-Public Use
  Company Number: US-2006-012281

PATIENT
  Age: 51 Year
  Sex: Female

DRUGS (13)
  1. BETASERON [Suspect]
     Indication: MULTIPLE SCLEROSIS
     Dosage: 6 MIU, EVERY 2D, SUBCUTANEOUS; SEE IMAGE
     Route: 058
     Dates: start: 20060510
  2. BETASERON [Suspect]
     Indication: MULTIPLE SCLEROSIS
     Dosage: 6 MIU, EVERY 2D, SUBCUTANEOUS; SEE IMAGE
     Route: 058
     Dates: start: 20060525
  3. ARIMIDEX [Concomitant]
  4. LIPITOR [Concomitant]
  5. TRAZODONE HCL [Concomitant]
  6. NEURONTIN [Concomitant]
  7. BP MEDS [Concomitant]
  8. PAXIL [Concomitant]
  9. ASPIRIN [Concomitant]
  10. CALCIUM (CALCIUM) [Concomitant]
  11. STOOL SOFTENER (DOCUSATE SODIUM) [Concomitant]
  12. NETANX [Concomitant]
  13. DIAZIDE (GLICLAZIDE) [Concomitant]

REACTIONS (10)
  - CONDITION AGGRAVATED [None]
  - FALL [None]
  - FOOT FRACTURE [None]
  - INJECTION SITE BRUISING [None]
  - INJECTION SITE PAIN [None]
  - INJECTION SITE REACTION [None]
  - MULTIPLE SCLEROSIS [None]
  - VAGINAL HAEMORRHAGE [None]
  - VASCULAR FRAGILITY [None]
  - VISUAL ACUITY REDUCED [None]
